FAERS Safety Report 20715586 (Version 2)
Quarter: 2022Q2

REPORT INFORMATION
  Report Type: Spontaneous
  Country: CH (occurrence: CH)
  Receive Date: 20220415
  Receipt Date: 20220606
  Transmission Date: 20220721
  Serious: Yes (Disabling, Other)
  Sender: FDA-Public Use
  Company Number: CH-TEVA-2022-CH-2026672

PATIENT
  Age: 41 Year
  Sex: Male

DRUGS (4)
  1. CIPROFLOXACIN HYDROCHLORIDE [Suspect]
     Active Substance: CIPROFLOXACIN HYDROCHLORIDE
     Route: 065
     Dates: start: 202110
  2. SALICYLIC ACID [Suspect]
     Active Substance: SALICYLIC ACID
     Route: 065
  3. OXALIC ACID [Suspect]
     Active Substance: OXALIC ACID
     Route: 065
  4. HISTAMINE [Suspect]
     Active Substance: HISTAMINE
     Route: 065

REACTIONS (24)
  - Small fibre neuropathy [Unknown]
  - Wheelchair user [Unknown]
  - Connective tissue inflammation [Unknown]
  - Tinnitus [Unknown]
  - Collagen disorder [Unknown]
  - Adverse event [Unknown]
  - Arthralgia [Unknown]
  - Burning sensation [Unknown]
  - Hypoaesthesia [Unknown]
  - Tendonitis [Unknown]
  - Visual impairment [Unknown]
  - Emotional distress [Unknown]
  - Tendon rupture [Unknown]
  - Oxidative stress [Unknown]
  - Asthenia [Unknown]
  - Connective tissue disorder [Unknown]
  - Inflammation [Unknown]
  - Carbohydrate intolerance [Unknown]
  - Glucose tolerance impaired [Unknown]
  - Alcohol intolerance [Unknown]
  - Histamine intolerance [Unknown]
  - Caffeine allergy [Unknown]
  - Food intolerance [Unknown]
  - Drug intolerance [Unknown]
